FAERS Safety Report 15197196 (Version 8)
Quarter: 2019Q1

REPORT INFORMATION
  Report Type: Report from Study
  Country: US (occurrence: US)
  Receive Date: 20180725
  Receipt Date: 20190226
  Transmission Date: 20190417
  Serious: Yes (Death, Hospitalization)
  Sender: FDA-Public Use
  Company Number: US-ACTELION-A-NJ2018-169420

PATIENT
  Age: 51 Year
  Sex: Female
  Weight: 77.1 kg

DRUGS (9)
  1. VELETRI [Suspect]
     Active Substance: EPOPROSTENOL
     Dosage: 20 NG/KG, PER MIN
     Route: 042
  2. REVATIO [Concomitant]
     Active Substance: SILDENAFIL CITRATE
  3. OPSUMIT [Suspect]
     Active Substance: MACITENTAN
     Indication: PULMONARY ARTERIAL HYPERTENSION
     Dosage: 10 MG, QD
     Route: 048
  4. VELETRI [Suspect]
     Active Substance: EPOPROSTENOL
     Dosage: 7 NG/KG, PER MIN
     Route: 042
     Dates: start: 201804
  5. ORENITRAM [Concomitant]
     Active Substance: TREPROSTINIL
     Dosage: UNK
     Dates: end: 201804
  6. VELETRI [Suspect]
     Active Substance: EPOPROSTENOL
     Indication: PULMONARY ARTERIAL HYPERTENSION
     Dosage: 36 NG/KG, PER MIN
     Route: 042
  7. DILTIAZEM. [Concomitant]
     Active Substance: DILTIAZEM
  8. DOPAMINE [Concomitant]
     Active Substance: DOPAMINE\DOPAMINE HYDROCHLORIDE
     Dosage: UNK
  9. FLOLAN [Suspect]
     Active Substance: EPOPROSTENOL SODIUM
     Indication: PRODUCT USED FOR UNKNOWN INDICATION
     Route: 065

REACTIONS (24)
  - Dyspnoea [Unknown]
  - Device use issue [Unknown]
  - Migraine [Unknown]
  - Product dose omission [Unknown]
  - Muscle spasms [Unknown]
  - Oedema [Unknown]
  - Presyncope [Unknown]
  - Medication dilution [Unknown]
  - Cardiac failure acute [Unknown]
  - Headache [Unknown]
  - Oedema peripheral [Unknown]
  - Catheter site discharge [Unknown]
  - Death [Fatal]
  - Fluid retention [Unknown]
  - Asthenia [Unknown]
  - Constipation [Unknown]
  - Diarrhoea [Unknown]
  - Eye pain [Unknown]
  - Fluid overload [Recovering/Resolving]
  - Nausea [Unknown]
  - Product quality issue [Unknown]
  - Product administration error [Unknown]
  - Weight increased [Recovering/Resolving]
  - Flushing [Unknown]

NARRATIVE: CASE EVENT DATE: 20180404
